FAERS Safety Report 7818034-3 (Version None)
Quarter: 2011Q4

REPORT INFORMATION
  Report Type: 
  Country: None (occurrence: None)
  Receive Date: 20111017
  Receipt Date: 20111004
  Transmission Date: 20120403
  Serious: No
  Sender: FDA-Public Use
  Company Number: US-BAYER-2011-095551

PATIENT

DRUGS (1)
  1. BETASERON [Suspect]

REACTIONS (2)
  - SKIN REACTION [None]
  - DRUG INTOLERANCE [None]
